FAERS Safety Report 19426228 (Version 3)
Quarter: 2021Q3

REPORT INFORMATION
  Report Type: Report from Study
  Country: CA (occurrence: CA)
  Receive Date: 20210616
  Receipt Date: 20210830
  Transmission Date: 20211014
  Serious: Yes (Death, Hospitalization)
  Sender: FDA-Public Use
  Company Number: CA-OTSUKA-2021_020053

PATIENT
  Age: 64 Year
  Sex: Male

DRUGS (2)
  1. CEDAZURIDINE AND DECITABINE [Suspect]
     Active Substance: CEDAZURIDINE\DECITABINE
     Indication: CHRONIC MYELOMONOCYTIC LEUKAEMIA
     Dosage: 35/100 MG (35 MG DECITABINE AND 100 MG CEDAZURIDINE), QD 1?5 DAYS EVERY 28 DAY CYCLE
     Route: 065
     Dates: start: 20210218
  2. CEDAZURIDINE AND DECITABINE [Suspect]
     Active Substance: CEDAZURIDINE\DECITABINE
     Dosage: 35/100 MG (35 MG DECITABINE AND 100 MG CEDAZURIDINE), QD 1?3 DAYS EVERY 28 DAY CYCLE
     Route: 065
     Dates: start: 20210714

REACTIONS (6)
  - Abdominal cavity drainage [Unknown]
  - Weight decreased [Unknown]
  - Decreased appetite [Unknown]
  - Blood pressure decreased [Unknown]
  - Death [Fatal]
  - Product use issue [Unknown]

NARRATIVE: CASE EVENT DATE: 20210714
